FAERS Safety Report 10217874 (Version 2)
Quarter: 2014Q2

REPORT INFORMATION
  Report Type: Spontaneous
  Country: US (occurrence: US)
  Receive Date: 20140605
  Receipt Date: 20140620
  Transmission Date: 20141212
  Serious: Yes (Other)
  Sender: FDA-Public Use
  Company Number: US-ROCHE-1413752

PATIENT
  Age: 10 Year
  Sex: Male
  Weight: 26.97 kg

DRUGS (14)
  1. XOLAIR [Suspect]
     Indication: ASTHMA
     Route: 058
     Dates: start: 20140528
  2. XOLAIR [Suspect]
     Route: 058
     Dates: start: 20140528
  3. SINGULAIR [Concomitant]
  4. ALLEGRA [Concomitant]
  5. CROMOLYN [Concomitant]
  6. ADVAIR [Concomitant]
  7. VERAMYST [Concomitant]
  8. BENADRYL (UNITED STATES) [Concomitant]
  9. HYDROCORTISONE [Concomitant]
     Route: 061
     Dates: start: 20120328
  10. CLARITIN [Concomitant]
  11. ZYRTEC [Concomitant]
  12. PREDNISONE [Concomitant]
  13. OMEPRAZOLE [Concomitant]
     Route: 048
     Dates: start: 20140214
  14. ATARAX [Concomitant]
     Dosage: AT BED TIME
     Route: 048
     Dates: start: 20120328

REACTIONS (2)
  - Asthma [Recovered/Resolved]
  - Oropharyngeal pain [Recovered/Resolved]
